FAERS Safety Report 6167607-5 (Version None)
Quarter: 2009Q2

REPORT INFORMATION
  Report Type: 
  Country: None (occurrence: None)
  Receive Date: 20090424
  Receipt Date: 20090420
  Transmission Date: 20091009
  Serious: Yes (Death)
  Sender: FDA-Public Use
  Company Number: US-AMGEN-US343672

PATIENT
  Sex: Female

DRUGS (3)
  1. NPLATE [Suspect]
     Indication: IDIOPATHIC THROMBOCYTOPENIC PURPURA
     Route: 065
     Dates: start: 20081008, end: 20081121
  2. CORTICOSTEROIDS [Concomitant]
     Route: 065
  3. IMMUNOGLOBULINS [Concomitant]
     Route: 042

REACTIONS (3)
  - CLOSTRIDIAL INFECTION [None]
  - IDIOPATHIC THROMBOCYTOPENIC PURPURA [None]
  - STAPHYLOCOCCAL INFECTION [None]
